FAERS Safety Report 4631143-5 (Version None)
Quarter: 2005Q2

REPORT INFORMATION
  Report Type: 
  Country: None (occurrence: None)
  Receive Date: 20050407
  Receipt Date: 20050407
  Transmission Date: 20051028
  Serious: Yes (Life-Threatening, Hospitalization)
  Sender: FDA-Public Use
  Company Number: None

PATIENT
  Age: 12 Year
  Sex: Male
  Weight: 34.4734 kg

DRUGS (1)
  1. ADDERALL XR 30 [Suspect]
     Dosage: 1 DAILY   ORAL
     Route: 048
     Dates: start: 20041207, end: 20050406

REACTIONS (3)
  - HALLUCINATION, AUDITORY [None]
  - HALLUCINATION, VISUAL [None]
  - SUICIDE ATTEMPT [None]
